FAERS Safety Report 9777680 (Version 2)
Quarter: 2014Q1

REPORT INFORMATION
  Report Type: Spontaneous
  Country: AT (occurrence: AT)
  Receive Date: 20131223
  Receipt Date: 20140203
  Transmission Date: 20141002
  Serious: Yes (Death, Other)
  Sender: FDA-Public Use
  Company Number: AT-AMGEN-AUTSP2013088773

PATIENT
  Age: 58 Year
  Sex: Male

DRUGS (10)
  1. CINACALCET HCL [Suspect]
     Indication: HYPERPARATHYROIDISM
     Dosage: 300 MG, UNK
     Route: 065
  2. SODIUM THIOSULFATE [Suspect]
     Indication: PRODUCT USED FOR UNKNOWN INDICATION
     Dosage: 80 G, UNK
     Route: 042
  3. SEVELAMER [Concomitant]
     Dosage: 4800 MG, UNK
     Route: 065
  4. CALCIUM [Concomitant]
     Route: 065
  5. HEPARIN [Concomitant]
     Route: 042
  6. SODIUM BICARBONATE [Concomitant]
     Indication: ACIDOSIS
     Route: 042
  7. CALCITONIN                         /00371903/ [Concomitant]
     Route: 065
  8. IBANDRONATE [Concomitant]
     Dosage: 2 MG, ONCE
     Route: 042
  9. INSULIN [Concomitant]
  10. VITAMIN D3 [Concomitant]
     Dosage: 3.5 MUG, QWK

REACTIONS (16)
  - Sudden cardiac death [Fatal]
  - Epilepsy [Recovered/Resolved]
  - Pneumonia pneumococcal [Recovering/Resolving]
  - Gastric ulcer haemorrhage [Recovered/Resolved]
  - Skin necrosis [Recovered/Resolved]
  - Sepsis [Recovering/Resolving]
  - Erysipelas [Recovering/Resolving]
  - Hypernatraemia [Recovered/Resolved]
  - Metabolic acidosis [Recovered/Resolved]
  - Decreased appetite [Recovered/Resolved]
  - Nausea [Recovered/Resolved]
  - Vomiting [Recovered/Resolved]
  - Treatment noncompliance [Recovering/Resolving]
  - Oedema [Recovered/Resolved]
  - Pruritus [Recovering/Resolving]
  - Diet noncompliance [Recovering/Resolving]
